FAERS Safety Report 5029308-6 (Version None)
Quarter: 2006Q2

REPORT INFORMATION
  Report Type: 
  Country: None (occurrence: None)
  Receive Date: 20060614
  Receipt Date: 20060519
  Transmission Date: 20061013
  Serious: Yes (Other)
  Sender: FDA-Public Use
  Company Number: 165093

PATIENT
  Sex: Female
  Weight: 43.5453 kg

DRUGS (10)
  1. AVONEX [Suspect]
     Indication: MULTIPLE SCLEROSIS
     Dosage: 30 UG; QW; IM
     Route: 030
     Dates: start: 20000101, end: 20030101
  2. BIRTH CONTROL PILLS (NOS) [Concomitant]
  3. NEURONTIN [Concomitant]
  4. BACLOFEN [Concomitant]
  5. VALIUM [Concomitant]
  6. VIOXX [Concomitant]
  7. TOPAMAX [Concomitant]
  8. CELEXA [Concomitant]
  9. IMITREX [Concomitant]
  10. REBIF [Concomitant]

REACTIONS (6)
  - AUTOIMMUNE HEPATITIS [None]
  - HEPATIC NECROSIS [None]
  - HEPATITIS ACUTE [None]
  - HEPATOCELLULAR DAMAGE [None]
  - MENSTRUATION IRREGULAR [None]
  - MULTIPLE SCLEROSIS [None]
